FAERS Safety Report 12470985 (Version 1)
Quarter: 2016Q2

REPORT INFORMATION
  Report Type: Spontaneous
  Country: US (occurrence: US)
  Receive Date: 20160616
  Receipt Date: 20160616
  Transmission Date: 20160815
  Serious: No
  Sender: FDA-Public Use
  Company Number: US-009507513-1606USA004557

PATIENT
  Sex: Female

DRUGS (1)
  1. NEXPLANON [Suspect]
     Active Substance: ETONOGESTREL
     Dosage: 1 ROD,  FREQUNECY REPORTED AS ^1 TIME^
     Route: 059
     Dates: start: 201604

REACTIONS (1)
  - Menstrual disorder [Unknown]

NARRATIVE: CASE EVENT DATE: 2016
